FAERS Safety Report 8009076-6 (Version None)
Quarter: 2011Q4

REPORT INFORMATION
  Report Type: 
  Country: None (occurrence: None)
  Receive Date: 20111227
  Receipt Date: 20111220
  Transmission Date: 20120403
  Serious: No
  Sender: FDA-Public Use
  Company Number: US-PFIZER INC-2011308767

PATIENT

DRUGS (1)
  1. FLECTOR [Suspect]
     Dosage: UNK

REACTIONS (1)
  - SKIN REACTION [None]
